FAERS Safety Report 18546613 (Version 1)
Quarter: 2020Q4

REPORT INFORMATION
  Report Type: Spontaneous
  Country: DE (occurrence: DE)
  Receive Date: 20201125
  Receipt Date: 20201125
  Transmission Date: 20210114
  Serious: Yes (Hospitalization)
  Sender: FDA-Public Use
  Company Number: DE-JNJFOC-20201117572

PATIENT
  Age: 63 Year
  Sex: Female
  Weight: 72 kg

DRUGS (9)
  1. ETORICOXIB. [Suspect]
     Active Substance: ETORICOXIB
     Indication: PRODUCT USED FOR UNKNOWN INDICATION
     Dosage: 90 MG, OM
     Route: 048
  2. FERRO SANOL [Concomitant]
     Active Substance: FERROUS GLYCINE SULFATE
     Dosage: 100 MG, OM
     Route: 048
  3. COLECALCIFEROL [Concomitant]
     Active Substance: CHOLECALCIFEROL
     Dosage: 20000 IU, OW
     Route: 048
  4. CEFURAX [Concomitant]
     Active Substance: CEFUROXIME AXETIL
     Dosage: 500 MG, BID
     Route: 048
  5. METAMIZOLE [Concomitant]
     Active Substance: METAMIZOLE
     Dosage: 1000 MG, QID
     Route: 048
  6. METOPROLOL COMP. [Concomitant]
     Dosage: 12.5MG/100 MG, OM
     Route: 048
  7. NALOXONE W/OXYCODONE [Concomitant]
     Active Substance: NALOXONE HYDROCHLORIDE\OXYCODONE HYDROCHLORIDE
     Dosage: 5 MG/10 MG, BID
     Route: 048
  8. RIVAROXABAN [Suspect]
     Active Substance: RIVAROXABAN
     Indication: PRODUCT USED FOR UNKNOWN INDICATION
     Dosage: 20 MG, OM
     Route: 048
  9. FOLIC ACID. [Concomitant]
     Active Substance: FOLIC ACID
     Dosage: 5 MG, OM
     Route: 048

REACTIONS (4)
  - Dizziness [Unknown]
  - Fatigue [Unknown]
  - Haematochezia [Unknown]
  - General physical health deterioration [Unknown]
